FAERS Safety Report 20770646 (Version 1)
Quarter: 2022Q2

REPORT INFORMATION
  Report Type: Spontaneous
  Country: GB (occurrence: GB)
  Receive Date: 20220429
  Receipt Date: 20220429
  Transmission Date: 20220721
  Serious: Yes (Other)
  Sender: FDA-Public Use
  Company Number: GB-MYLANLABS-2022M1032020

PATIENT
  Age: 58 Year
  Sex: Female

DRUGS (11)
  1. FLUOROURACIL [Suspect]
     Active Substance: FLUOROURACIL
     Indication: Gallbladder cancer stage IV
     Dosage: UNK; THIRD-LINE FOLFOX CHEMOTHERAPY
     Route: 065
     Dates: start: 201909, end: 202003
  2. FLUOROURACIL [Suspect]
     Active Substance: FLUOROURACIL
     Dosage: UNK
     Route: 065
     Dates: start: 202008
  3. TRASTUZUMAB [Suspect]
     Active Substance: TRASTUZUMAB
     Indication: Gallbladder cancer stage IV
     Dosage: 8 MILLIGRAM/KILOGRAM; LOADING DOSE
     Route: 065
     Dates: start: 202011
  4. TRASTUZUMAB [Suspect]
     Active Substance: TRASTUZUMAB
     Dosage: 6 MILLIGRAM/KILOGRAM, Q21D
     Route: 065
     Dates: start: 202011, end: 202103
  5. CISPLATIN [Suspect]
     Active Substance: CISPLATIN
     Indication: Gallbladder cancer stage IV
     Dosage: UNK (FIRST-LINE THERAPY)
     Route: 065
     Dates: start: 201905
  6. GEMCITABINE [Suspect]
     Active Substance: GEMCITABINE
     Indication: Gallbladder cancer stage IV
     Dosage: UNK (FIRST-LINE THERAPY)
     Route: 065
     Dates: start: 201905
  7. LEUCOVORIN [Suspect]
     Active Substance: LEUCOVORIN
     Indication: Gallbladder cancer stage IV
     Dosage: UNK; THIRD-LINE FOLFOX CHEMOTHERAPY
     Route: 065
     Dates: start: 201909, end: 202003
  8. LEUCOVORIN [Suspect]
     Active Substance: LEUCOVORIN
     Dosage: UNK
     Route: 065
     Dates: start: 202008
  9. OXALIPLATIN [Suspect]
     Active Substance: OXALIPLATIN
     Indication: Gallbladder cancer stage IV
     Dosage: UNK (THIRD-LINE FOLFOX CHEMOTHERAPY)
     Route: 065
     Dates: start: 201909, end: 202003
  10. OXALIPLATIN [Suspect]
     Active Substance: OXALIPLATIN
     Dosage: UNK
     Route: 065
     Dates: start: 202008
  11. LAPATINIB [Suspect]
     Active Substance: LAPATINIB
     Indication: Gallbladder cancer stage IV
     Dosage: 1250 MILLIGRAM, QD
     Route: 065
     Dates: start: 202011, end: 2021

REACTIONS (2)
  - Drug resistance [Unknown]
  - Drug ineffective [Unknown]

NARRATIVE: CASE EVENT DATE: 20190101
